FAERS Safety Report 23497665 (Version 3)
Quarter: 2024Q1

REPORT INFORMATION
  Report Type: Spontaneous
  Country: DE (occurrence: DE)
  Receive Date: 20240208
  Receipt Date: 20240312
  Transmission Date: 20240409
  Serious: Yes (Life-Threatening, Hospitalization, Disabling)
  Sender: FDA-Public Use
  Company Number: DE-PFIZER INC-202400032236

PATIENT
  Age: 6 Year
  Sex: Male
  Weight: 15 kg

DRUGS (2)
  1. NGENLA [Suspect]
     Active Substance: SOMATROGON-GHLA
     Indication: Growth hormone deficiency
     Dosage: 0.9 MG, WEEKLY
     Dates: start: 20231117, end: 20231218
  2. LEVOTHYROXINE SODIUM [Concomitant]
     Active Substance: LEVOTHYROXINE SODIUM
     Dosage: 25 UG, 1X/DAY, 1-0-0
     Dates: start: 20201222

REACTIONS (2)
  - Neuroblastoma recurrent [Recovering/Resolving]
  - Metastases to bone marrow [Recovering/Resolving]

NARRATIVE: CASE EVENT DATE: 20231203
